FAERS Safety Report 20586904 (Version 1)
Quarter: 2022Q1

REPORT INFORMATION
  Report Type: Report from Study
  Country: US (occurrence: US)
  Receive Date: 20220314
  Receipt Date: 20220314
  Transmission Date: 20220423
  Serious: Yes (Hospitalization, Other)
  Sender: FDA-Public Use
  Company Number: US-ABBVIE-22K-163-4308735-00

PATIENT
  Sex: Male

DRUGS (1)
  1. VENCLEXTA [Suspect]
     Active Substance: VENETOCLAX
     Indication: Product used for unknown indication
     Route: 048

REACTIONS (5)
  - Pulmonary congestion [Unknown]
  - Pulmonary oedema [Unknown]
  - Platelet count decreased [Unknown]
  - White blood cell count abnormal [Unknown]
  - Febrile neutropenia [Unknown]
